FAERS Safety Report 9835697 (Version 1)
Quarter: 2014Q1

REPORT INFORMATION
  Report Type: Spontaneous
  Country: PT (occurrence: PT)
  Receive Date: 20140122
  Receipt Date: 20140122
  Transmission Date: 20141002
  Serious: Yes (Other)
  Sender: FDA-Public Use
  Company Number: PHHY2014PT005562

PATIENT
  Age: 3 Year
  Sex: Male

DRUGS (3)
  1. CICLOSPORIN [Suspect]
  2. PREDNISOLONE [Suspect]
  3. SIROLIMUS [Suspect]

REACTIONS (3)
  - Posterior reversible encephalopathy syndrome [Unknown]
  - Grand mal convulsion [Unknown]
  - Central nervous system lesion [Recovered/Resolved]
